FAERS Safety Report 4983586-8 (Version None)
Quarter: 2006Q2

REPORT INFORMATION
  Report Type: 
  Country: None (occurrence: None)
  Receive Date: 20060426
  Receipt Date: 20051025
  Transmission Date: 20061013
  Serious: Yes (Hospitalization, Disabling)
  Sender: FDA-Public Use
  Company Number: US-ROCHE-422740

PATIENT
  Age: 18 Year
  Sex: Female
  Weight: 63.5 kg

DRUGS (2)
  1. ACCUTANE [Suspect]
     Indication: ACNE
     Route: 048
     Dates: start: 19991011, end: 20000615
  2. LORTAB [Concomitant]
     Indication: PAIN
     Dates: start: 20041209

REACTIONS (40)
  - ABASIA [None]
  - ABDOMINAL PAIN [None]
  - ALCOHOLISM [None]
  - ANAEMIA [None]
  - ANHEDONIA [None]
  - ANXIETY [None]
  - BACK INJURY [None]
  - BRONCHIAL HYPERACTIVITY [None]
  - COLITIS [None]
  - COLITIS ULCERATIVE [None]
  - CONDITION AGGRAVATED [None]
  - CONFUSIONAL STATE [None]
  - CONTUSION [None]
  - CYSTITIS [None]
  - DEVICE INEFFECTIVE [None]
  - DRUG EXPOSURE DURING PREGNANCY [None]
  - EPISTAXIS [None]
  - FACE INJURY [None]
  - FALL [None]
  - GASTROINTESTINAL DISORDER [None]
  - GLOMERULONEPHRITIS [None]
  - GLOMERULONEPHRITIS PROLIFERATIVE [None]
  - HEADACHE [None]
  - HYPONATRAEMIA [None]
  - INFLAMMATORY BOWEL DISEASE [None]
  - INTESTINAL HAEMORRHAGE [None]
  - JAW DISORDER [None]
  - JOINT SPRAIN [None]
  - MENTAL STATUS CHANGES [None]
  - MULTI-ORGAN DISORDER [None]
  - PAIN [None]
  - PNEUMONIA [None]
  - POSTPARTUM VAGINAL LACERATION [None]
  - PREGNANCY [None]
  - PROTEINURIA [None]
  - RASH [None]
  - SOMNOLENCE [None]
  - SWELLING [None]
  - URINARY TRACT INFECTION [None]
  - WOUND SECRETION [None]
